FAERS Safety Report 8495431 (Version 5)
Quarter: 2012Q4

REPORT INFORMATION
  Report Type: 
  Country: CA (occurrence: CA)
  Receive Date: 20120327
  Receipt Date: 20121114
  Transmission Date: 20130627
  Serious: Yes (Other)
  Sender: FDA-Public Use
  Company Number: CA-009507513-2012SP015287

PATIENT
  Age: 64 Year
  Sex: Female
  Weight: 70 kg

DRUGS (5)
  1. VICTRELIS [Suspect]
     Indication: HEPATITIS C
     Dosage: 800 mg, q8h
     Dates: start: 20120105
  2. COPEGUS [Suspect]
     Indication: HEPATITIS C
     Dosage: 1200 mg, QD
     Route: 048
     Dates: start: 20111214
  3. PEGASYS [Suspect]
     Indication: HEPATITIS C
     Dosage: 180 ?g, UNK
     Route: 058
     Dates: start: 20111214
  4. VALIUM [Concomitant]
     Dosage: UNK
  5. EPREX [Concomitant]
     Indication: ANAEMIA
     Dosage: 40000 IU, qw
     Route: 058
     Dates: start: 20120314

REACTIONS (10)
  - Blindness [Recovered/Resolved]
  - Deafness [Recovered/Resolved]
  - Depression [Not Recovered/Not Resolved]
  - Hyperhidrosis [Not Recovered/Not Resolved]
  - Migraine [Not Recovered/Not Resolved]
  - Anger [Unknown]
  - Nausea [Not Recovered/Not Resolved]
  - Vomiting [Not Recovered/Not Resolved]
  - Diarrhoea [Not Recovered/Not Resolved]
  - Anaemia [Unknown]
